FAERS Safety Report 6582021-6 (Version None)
Quarter: 2010Q1

REPORT INFORMATION
  Report Type: 
  Country: None (occurrence: None)
  Receive Date: 20100215
  Receipt Date: 20100209
  Transmission Date: 20100710
  Serious: Yes (Hospitalization)
  Sender: FDA-Public Use
  Company Number: JP-JNJFOC-20100201841

PATIENT
  Age: 61 Year
  Sex: Female

DRUGS (16)
  1. ITRIZOLE [Suspect]
     Indication: ANTIFUNGAL PROPHYLAXIS
     Route: 048
  2. ONCOVIN [Suspect]
     Indication: DRUG USE FOR UNKNOWN INDICATION
     Route: 042
  3. VINCRISTINE SULFATE [Suspect]
     Indication: DRUG USE FOR UNKNOWN INDICATION
     Route: 065
  4. VINCRISTINE SULFATE [Suspect]
     Route: 065
  5. VINCRISTINE SULFATE [Suspect]
     Route: 065
  6. VINCRISTINE SULFATE [Suspect]
     Route: 065
  7. VINCRISTINE SULFATE [Suspect]
     Route: 065
  8. VINCRISTINE SULFATE [Suspect]
     Route: 065
  9. VINCRISTINE SULFATE [Suspect]
     Route: 065
  10. VINCRISTINE SULFATE [Suspect]
     Route: 065
  11. STEROIDS NOS [Concomitant]
     Route: 065
  12. PREDONINE [Concomitant]
     Dosage: DOSE FROM 85MG T0 30 MG
     Route: 065
  13. DEXAMETHASONE [Concomitant]
     Route: 065
  14. DECADRON [Concomitant]
     Route: 065
  15. DECADRON [Concomitant]
     Route: 065
  16. DECADRON [Concomitant]
     Route: 065

REACTIONS (1)
  - MUSCULAR WEAKNESS [None]
